FAERS Safety Report 5753204-X (Version None)
Quarter: 2008Q2

REPORT INFORMATION
  Report Type: 
  Country: None (occurrence: None)
  Receive Date: 20080527
  Receipt Date: 20080512
  Transmission Date: 20081010
  Serious: Yes (Hospitalization)
  Sender: FDA-Public Use
  Company Number: CAP08000158

PATIENT
  Age: 67 Year
  Sex: Female

DRUGS (3)
  1. ACTONEL [Suspect]
     Dosage: 35 MG ONCE WEEKLY, ORAL
     Route: 048
     Dates: start: 20040101
  2. RABEPRAZOLE SODIUM [Concomitant]
  3. RAMPRIL (RAMIPRIL) [Concomitant]

REACTIONS (1)
  - GASTRIC CANCER [None]
